FAERS Safety Report 16857792 (Version 1)
Quarter: 2019Q3

REPORT INFORMATION
  Report Type: Report from Study
  Country: CZ (occurrence: CZ)
  Receive Date: 20190926
  Receipt Date: 20190926
  Transmission Date: 20191005
  Serious: Yes (Hospitalization)
  Sender: FDA-Public Use
  Company Number: CZ-JNJFOC-20190926906

PATIENT
  Age: 34 Year
  Sex: Female

DRUGS (1)
  1. SIMPONI [Suspect]
     Active Substance: GOLIMUMAB
     Indication: RHEUMATOID ARTHRITIS
     Route: 058
     Dates: start: 20120910, end: 20190107

REACTIONS (2)
  - Drug ineffective [Unknown]
  - Meniscus injury [Recovered/Resolved]

NARRATIVE: CASE EVENT DATE: 20190115
